FAERS Safety Report 8020338-9 (Version None)
Quarter: 2012Q1

REPORT INFORMATION
  Report Type: 
  Country: None (occurrence: None)
  Receive Date: 20120103
  Receipt Date: 20111229
  Transmission Date: 20120608
  Serious: Yes (Hospitalization)
  Sender: FDA-Public Use
  Company Number: US-B.I. PHARMACEUTICALS,INC./RIDGEFIELD-2012-BP-00003BP

PATIENT
  Sex: Female

DRUGS (2)
  1. PRADAXA [Suspect]
     Indication: THROMBOSIS PROPHYLAXIS
     Dosage: 300 MG
     Route: 048
     Dates: start: 20110101, end: 20111223
  2. CALCIUM ACETATE [Concomitant]
     Indication: OSTEOPOROSIS
     Dosage: 1000 U
     Route: 048
     Dates: start: 20110101

REACTIONS (3)
  - PALLOR [None]
  - PAIN IN EXTREMITY [None]
  - PULSE ABSENT [None]
